FAERS Safety Report 8188284-8 (Version None)
Quarter: 2012Q1

REPORT INFORMATION
  Report Type: 
  Country: None (occurrence: None)
  Receive Date: 20120306
  Receipt Date: 20120223
  Transmission Date: 20120608
  Serious: Yes (Hospitalization)
  Sender: FDA-Public Use
  Company Number: AT-ELI_LILLY_AND_COMPANY-AT201202007044

PATIENT
  Age: 53 Year
  Sex: Female

DRUGS (3)
  1. TERIPARATIDE [Suspect]
     Indication: OSTEOPOROSIS
     Dosage: UNK, QD
     Route: 058
     Dates: start: 20111206
  2. MAXI-CALC [Concomitant]
  3. VITAMIN D [Concomitant]

REACTIONS (3)
  - FALL [None]
  - SPINAL FRACTURE [None]
  - BACK PAIN [None]
